FAERS Safety Report 5855796-9 (Version None)
Quarter: 2008Q3

REPORT INFORMATION
  Report Type: 
  Country: None (occurrence: None)
  Receive Date: 20080825
  Receipt Date: 20070821
  Transmission Date: 20090109
  Serious: No
  Sender: FDA-Public Use
  Company Number: US-KINGPHARMUSA00001-K200701057

PATIENT

DRUGS (2)
  1. SEPTRA [Suspect]
     Indication: BLOOD CHOLESTEROL INCREASED
     Dosage: UNK, BID
     Route: 048
     Dates: start: 20070731, end: 20070101
  2. LOVASTATIN [Concomitant]

REACTIONS (3)
  - DIZZINESS [None]
  - FEELING ABNORMAL [None]
  - HYPERHIDROSIS [None]
